FAERS Safety Report 7997079-7 (Version None)
Quarter: 2011Q4

REPORT INFORMATION
  Report Type: 
  Country: None (occurrence: None)
  Receive Date: 20111216
  Receipt Date: 20111205
  Transmission Date: 20120403
  Serious: Yes (Death, Life-Threatening, Hospitalization, Other)
  Sender: FDA-Public Use
  Company Number: 2011MA017251

PATIENT
  Age: 29 Year
  Sex: Female

DRUGS (1)
  1. BETAMETHASONE DIPROPIONATE [Suspect]
     Indication: STEVENS-JOHNSON SYNDROME

REACTIONS (4)
  - BRONCHIAL OBSTRUCTION [None]
  - CARDIAC DISORDER [None]
  - RESPIRATORY FAILURE [None]
  - BRONCHITIS CHRONIC [None]
